FAERS Safety Report 15273178 (Version 1)
Quarter: 2018Q3

REPORT INFORMATION
  Report Type: Spontaneous
  Country: FR (occurrence: FR)
  Receive Date: 20180813
  Receipt Date: 20180813
  Transmission Date: 20181010
  Serious: Yes (Hospitalization)
  Sender: FDA-Public Use
  Company Number: FR-ALLERGAN-1839298US

PATIENT
  Age: 56 Year
  Sex: Male
  Weight: 96 kg

DRUGS (4)
  1. DEX UNK [Suspect]
     Active Substance: UNSPECIFIED INGREDIENT
     Indication: ENDOPHTHALMITIS
     Dosage: 1 DF; CYCLICAL
     Route: 031
     Dates: start: 20180620, end: 20180620
  2. DEX UNK [Suspect]
     Active Substance: UNSPECIFIED INGREDIENT
     Dosage: 1 DF; CYCLICAL
     Route: 031
     Dates: start: 20180622, end: 20180622
  3. FORTUM [Suspect]
     Active Substance: CEFTAZIDIME
     Indication: ENDOPHTHALMITIS
     Dosage: 1 DF CYCLICAL; 3 INJECTIONS
     Route: 031
     Dates: start: 20180619, end: 20180622
  4. VANCOMYCINE [Suspect]
     Active Substance: VANCOMYCIN
     Indication: ENDOPHTHALMITIS
     Dosage: 3 INJECTIONS
     Route: 031
     Dates: start: 20180619, end: 20180622

REACTIONS (3)
  - Condition aggravated [Recovered/Resolved]
  - Endophthalmitis [Recovered/Resolved]
  - Off label use [Unknown]

NARRATIVE: CASE EVENT DATE: 20180713
